FAERS Safety Report 6348951-5 (Version None)
Quarter: 2009Q3

REPORT INFORMATION
  Report Type: 
  Country: None (occurrence: None)
  Receive Date: 20090911
  Receipt Date: 20090831
  Transmission Date: 20100115
  Serious: Yes (Other)
  Sender: FDA-Public Use
  Company Number: US-PFIZER INC-2009248931

PATIENT
  Sex: Female
  Weight: 70.748 kg

DRUGS (2)
  1. ZOLOFT [Suspect]
     Indication: INSOMNIA
     Dosage: 50 MG, 1X/DAY
     Dates: start: 20090201
  2. FISH OIL [Concomitant]
     Indication: BLOOD CHOLESTEROL INCREASED
     Dosage: UNK

REACTIONS (5)
  - BLOOD CHOLESTEROL INCREASED [None]
  - CATARACT OPERATION [None]
  - DRUG INEFFECTIVE [None]
  - EYE DISORDER [None]
  - OCULAR VASCULAR DISORDER [None]
